FAERS Safety Report 11774510 (Version 1)
Quarter: 2015Q4

REPORT INFORMATION
  Report Type: Spontaneous
  Country: US (occurrence: US)
  Receive Date: 20151124
  Receipt Date: 20151124
  Transmission Date: 20160304
  Serious: Yes (Death, Hospitalization)
  Sender: FDA-Public Use
  Company Number: US-INCYTE CORPORATION-2015IN005134

PATIENT
  Sex: Male

DRUGS (1)
  1. JAKAFI [Suspect]
     Active Substance: RUXOLITINIB
     Indication: MYELOFIBROSIS
     Dosage: NOT SPECIFIED
     Route: 048
     Dates: start: 2015, end: 201509

REACTIONS (2)
  - Meningoencephalitis herpetic [Fatal]
  - Graft versus host disease [Fatal]

NARRATIVE: CASE EVENT DATE: 2015
